FAERS Safety Report 7551300-8 (Version None)
Quarter: 2011Q2

REPORT INFORMATION
  Report Type: 
  Country: None (occurrence: None)
  Receive Date: 20110616
  Receipt Date: 20110613
  Transmission Date: 20111010
  Serious: Yes (Death, Hospitalization, Other)
  Sender: FDA-Public Use
  Company Number: PHHO2011US07886

PATIENT
  Sex: Male
  Weight: 91 kg

DRUGS (2)
  1. TEMOZOLOMIDE [Suspect]
     Indication: GLIOBLASTOMA
     Dosage: 160 MG, DAILY
     Route: 048
     Dates: start: 20100709, end: 20100811
  2. AFINITOR [Suspect]
     Indication: GLIOBLASTOMA
     Dosage: 70 MG, PER WEEK
     Route: 048
     Dates: start: 20100709, end: 20100806

REACTIONS (4)
  - PULMONARY EMBOLISM [None]
  - DEATH [None]
  - POST PROCEDURAL HAEMORRHAGE [None]
  - DYSPHAGIA [None]
